FAERS Safety Report 4706916-0 (Version None)
Quarter: 2005Q2

REPORT INFORMATION
  Report Type: 
  Country: None (occurrence: None)
  Receive Date: 20050630
  Receipt Date: 20050613
  Transmission Date: 20051028
  Serious: Yes (Life-Threatening)
  Sender: FDA-Public Use
  Company Number: CIO05010498

PATIENT
  Age: 86 Year
  Sex: Female
  Weight: 47.6 kg

DRUGS (1)
  1. METAMUCIL PLUS CALCIUM CAPSULES (PSYLLIUM HYDROPHILIC MUCILLOID 3 G) C [Suspect]
     Dosage: 1 CAPSUL, 1 ONLY FOR 1 DAY, ORAL
     Route: 048
     Dates: start: 20050612, end: 20050612

REACTIONS (3)
  - CHOKING [None]
  - FOREIGN BODY TRAUMA [None]
  - THROAT IRRITATION [None]
